FAERS Safety Report 16475712 (Version 4)
Quarter: 2019Q3

REPORT INFORMATION
  Report Type: Report from Study
  Country: US (occurrence: US)
  Receive Date: 20190625
  Receipt Date: 20190911
  Transmission Date: 20191004
  Serious: Yes (Hospitalization, Other)
  Sender: FDA-Public Use
  Company Number: US-GILEAD-2019-0390217

PATIENT
  Age: 69 Year
  Sex: Female

DRUGS (9)
  1. ORENITRAM [Suspect]
     Active Substance: TREPROSTINIL
     Dosage: 0.25 MG, TID
     Route: 065
  2. ADCIRCA [Concomitant]
     Active Substance: TADALAFIL
  3. TADALAFIL. [Concomitant]
     Active Substance: TADALAFIL
  4. AMBRISENTAN [Suspect]
     Active Substance: AMBRISENTAN
     Indication: PULMONARY ARTERIAL HYPERTENSION
     Dosage: 10 MG, QD
     Route: 048
     Dates: start: 20111117
  5. ORENITRAM [Suspect]
     Active Substance: TREPROSTINIL
     Indication: PRODUCT USED FOR UNKNOWN INDICATION
     Dosage: 2.75 MG, TID
     Route: 065
  6. ELIQUIS [Concomitant]
     Active Substance: APIXABAN
  7. ORENITRAM [Suspect]
     Active Substance: TREPROSTINIL
     Dosage: 2.125 MG
     Route: 065
  8. ORENITRAM [Suspect]
     Active Substance: TREPROSTINIL
     Dosage: 1.875 MG
     Route: 065
  9. ORENITRAM [Suspect]
     Active Substance: TREPROSTINIL
     Dosage: 0.125 MG, TID
     Route: 065

REACTIONS (13)
  - Myocardial infarction [Unknown]
  - Cognitive disorder [Not Recovered/Not Resolved]
  - Dyspnoea [Unknown]
  - Seizure [Unknown]
  - Peripheral swelling [Not Recovered/Not Resolved]
  - Peripheral swelling [Unknown]
  - Memory impairment [Not Recovered/Not Resolved]
  - Confusional state [Unknown]
  - Mental status changes [Unknown]
  - Chest pain [Unknown]
  - Vomiting [Unknown]
  - Gastric disorder [Recovered/Resolved]
  - Asthenia [Unknown]

NARRATIVE: CASE EVENT DATE: 20190614
